FAERS Safety Report 16092650 (Version 1)
Quarter: 2019Q1

REPORT INFORMATION
  Report Type: Report from Study
  Country: None (occurrence: BR)
  Receive Date: 20190319
  Receipt Date: 20190319
  Transmission Date: 20190418
  Serious: Yes (Hospitalization, Other)
  Sender: FDA-Public Use
  Company Number: BR-ABBVIE-19K-020-2705493-00

PATIENT
  Sex: Female
  Weight: 92 kg

DRUGS (4)
  1. STILNOX [Concomitant]
     Active Substance: ZOLPIDEM TARTRATE
     Indication: PAIN
  2. RIVOTRIL [Concomitant]
     Active Substance: CLONAZEPAM
     Indication: PAIN
  3. CYMBI [Concomitant]
     Indication: PAIN
  4. HUMIRA [Suspect]
     Active Substance: ADALIMUMAB
     Indication: ANKYLOSING SPONDYLITIS
     Route: 058
     Dates: start: 20180601, end: 201901

REACTIONS (6)
  - Leiomyoma [Unknown]
  - Spinal pain [Recovering/Resolving]
  - Ovarian cyst [Unknown]
  - Drug ineffective [Recovered/Resolved]
  - Pneumonia [Recovered/Resolved]
  - Weight increased [Not Recovered/Not Resolved]

NARRATIVE: CASE EVENT DATE: 201901
